FAERS Safety Report 10309332 (Version 1)
Quarter: 2014Q3

REPORT INFORMATION
  Report Type: Spontaneous
  Country: US (occurrence: None)
  Receive Date: 20140714
  Receipt Date: 20140714
  Transmission Date: 20150326
  Serious: Yes (Hospitalization)
  Sender: FDA-Public Use
  Company Number: UTC-044004

PATIENT
  Age: 74 Year
  Sex: Female
  Weight: 50.8 kg

DRUGS (1)
  1. TYVASO [Suspect]
     Active Substance: TREPROSTINIL
     Indication: COR PULMONALE CHRONIC
     Route: 055
     Dates: start: 20130731, end: 201402

REACTIONS (2)
  - Anaemia [None]
  - Gastrointestinal haemorrhage [None]

NARRATIVE: CASE EVENT DATE: 201312
